FAERS Safety Report 6670313-1 (Version None)
Quarter: 2010Q2

REPORT INFORMATION
  Report Type: 
  Country: None (occurrence: None)
  Receive Date: 20100406
  Receipt Date: 20100331
  Transmission Date: 20101027
  Serious: Yes (Hospitalization)
  Sender: FDA-Public Use
  Company Number: US-BRISTOL-MYERS SQUIBB COMPANY-15045719

PATIENT
  Age: 77 Year
  Sex: Female

DRUGS (4)
  1. CYTOXAN [Suspect]
     Route: 042
  2. TAXOTERE [Suspect]
  3. INSULIN [Concomitant]
  4. ADRIAMYCIN PFS [Concomitant]

REACTIONS (5)
  - BLOOD LACTATE DEHYDROGENASE INCREASED [None]
  - DEHYDRATION [None]
  - DIARRHOEA [None]
  - HEPATIC ENZYME INCREASED [None]
  - PALMAR-PLANTAR ERYTHRODYSAESTHESIA SYNDROME [None]
